FAERS Safety Report 21730858 (Version 1)
Quarter: 2022Q4

REPORT INFORMATION
  Report Type: Spontaneous
  Country: IT (occurrence: None)
  Receive Date: 20221215
  Receipt Date: 20221215
  Transmission Date: 20230113
  Serious: Yes (Other)
  Sender: FDA-Public Use
  Company Number: 2022A399697

PATIENT
  Age: 30 Year
  Sex: Female

DRUGS (4)
  1. QUETIAPINE [Suspect]
     Active Substance: QUETIAPINE
     Indication: Intentional self-injury
     Dosage: 10 CP/TOT
     Route: 048
     Dates: start: 20221003
  2. CLOTHIAPINE [Concomitant]
     Active Substance: CLOTHIAPINE
     Route: 065
  3. TALOFEN [Concomitant]
     Active Substance: PROMAZINE HYDROCHLORIDE
     Route: 065
  4. DELORAZEPAM [Concomitant]
     Active Substance: DELORAZEPAM
     Route: 065

REACTIONS (2)
  - Drug abuse [Recovered/Resolved]
  - Sopor [Recovered/Resolved]

NARRATIVE: CASE EVENT DATE: 20221003
